FAERS Safety Report 4734884-4 (Version None)
Quarter: 2005Q3

REPORT INFORMATION
  Report Type: 
  Country: None (occurrence: None)
  Receive Date: 20050804
  Receipt Date: 20050621
  Transmission Date: 20060218
  Serious: Yes (Other)
  Sender: FDA-Public Use
  Company Number: PHBS2005BR08848

PATIENT
  Age: 27 Year
  Sex: Male
  Weight: 57 kg

DRUGS (4)
  1. TANDRILAX [Concomitant]
     Indication: BACK PAIN
     Dosage: UNK, TID
     Route: 048
  2. IBUPROFEN [Concomitant]
     Indication: BACK PAIN
     Dosage: UNK, BID
     Route: 048
  3. PASALIX [Concomitant]
     Route: 048
  4. VOLTAREN [Suspect]
     Indication: BACK PAIN
     Dosage: 75 MG, QD

REACTIONS (3)
  - INJECTION SITE HAEMORRHAGE [None]
  - INJECTION SITE NECROSIS [None]
  - MEDICATION ERROR [None]
